FAERS Safety Report 13965741 (Version 7)
Quarter: 2018Q4

REPORT INFORMATION
  Report Type: Spontaneous
  Country: US (occurrence: US)
  Receive Date: 20170913
  Receipt Date: 20181129
  Transmission Date: 20190204
  Serious: Yes (Hospitalization, Other)
  Sender: FDA-Public Use
  Company Number: US-ACTELION-A-NJ2017-159393

PATIENT
  Age: 57 Year
  Sex: Female
  Weight: 85.26 kg

DRUGS (3)
  1. VENTAVIS [Suspect]
     Active Substance: ILOPROST
     Indication: PULMONARY ARTERIAL HYPERTENSION
     Dosage: 5 MCG, 4-9X DAILY
     Route: 055
     Dates: end: 201803
  2. REVATIO [Concomitant]
     Active Substance: SILDENAFIL CITRATE
  3. DILTIAZEM. [Concomitant]
     Active Substance: DILTIAZEM

REACTIONS (11)
  - Tonsil cancer [Recovered/Resolved]
  - Vomiting [Unknown]
  - Drug intolerance [Unknown]
  - Radiotherapy [Unknown]
  - Throat irritation [Unknown]
  - Product dose omission [Unknown]
  - Cough [Unknown]
  - Dry throat [Unknown]
  - Weight decreased [Unknown]
  - Chemotherapy [Unknown]
  - Dry mouth [Unknown]
